FAERS Safety Report 25766659 (Version 1)
Quarter: 2025Q3

REPORT INFORMATION
  Report Type: Spontaneous
  Country: US (occurrence: US)
  Receive Date: 20250905
  Receipt Date: 20250905
  Transmission Date: 20251021
  Serious: Yes (Other)
  Sender: DR REDDYS
  Company Number: US-DRL-USA-USA/2025/09/013480

PATIENT
  Age: 57 Year
  Sex: Male

DRUGS (4)
  1. BORTEZOMIB [Suspect]
     Active Substance: BORTEZOMIB
     Indication: Plasma cell myeloma
  2. DEXAMETHASONE [Concomitant]
     Active Substance: DEXAMETHASONE
     Indication: Plasma cell myeloma
  3. TOLODODEKIN ALFA [Concomitant]
     Active Substance: TOLODODEKIN ALFA
     Indication: Plasma cell myeloma
  4. LENALIDOMIDE [Concomitant]
     Active Substance: LENALIDOMIDE
     Indication: Plasma cell myeloma

REACTIONS (2)
  - Neuropathy peripheral [Recovered/Resolved]
  - Temperature intolerance [Recovered/Resolved]
